FAERS Safety Report 9858038 (Version 1)
Quarter: 2014Q1

REPORT INFORMATION
  Report Type: Report from Study
  Country: US (occurrence: US)
  Receive Date: 20140131
  Receipt Date: 20140131
  Transmission Date: 20141002
  Serious: Yes (Hospitalization)
  Sender: FDA-Public Use
  Company Number: US-ROCHE-1340472

PATIENT
  Sex: Male

DRUGS (10)
  1. LUCENTIS [Suspect]
     Indication: EYE HAEMORRHAGE
     Dosage: IN RIGHT EYE, ONE EVERY 4-5 WEEKS
     Route: 050
  2. LUCENTIS [Suspect]
     Indication: RETINAL VASCULAR THROMBOSIS
  3. METFORMIN [Concomitant]
     Indication: DIABETES MELLITUS
     Route: 065
  4. GLIPIZIDE [Concomitant]
     Indication: DIABETES MELLITUS
  5. FUROSEMIDE [Concomitant]
     Indication: CARDIAC FAILURE
  6. CARVEDILOL [Concomitant]
     Indication: CARDIAC FAILURE
     Route: 065
  7. LISINOPRIL [Concomitant]
     Indication: CARDIAC FAILURE
  8. LOVASTATIN [Concomitant]
  9. XARELTO [Concomitant]
  10. OXYBUTYNIN [Concomitant]

REACTIONS (2)
  - Cardiac failure [Unknown]
  - Visual impairment [Unknown]
